FAERS Safety Report 5981854-4 (Version None)
Quarter: 2008Q4

REPORT INFORMATION
  Report Type: 
  Country: None (occurrence: None)
  Receive Date: 20081202
  Receipt Date: 20081118
  Transmission Date: 20090506
  Serious: Yes (Hospitalization)
  Sender: FDA-Public Use
  Company Number: KV200800299

PATIENT
  Age: 68 Year
  Sex: Female
  Weight: 70.3 kg

DRUGS (5)
  1. ISOSORBIDE MONONITRATE SLOW RELEASE [Suspect]
     Indication: CARDIAC DISORDER
     Dosage: 60 MG, ONE TAB, QD, ORAL
     Route: 048
     Dates: start: 20010101
  2. METOFORMIN (METFORMIN) [Concomitant]
  3. LORTAB [Concomitant]
  4. ............................ [Concomitant]
  5. AMLODIPINE [Concomitant]

REACTIONS (4)
  - ANGINA PECTORIS [None]
  - EXTRASYSTOLES [None]
  - HEADACHE [None]
  - PRODUCT QUALITY ISSUE [None]
